FAERS Safety Report 16397922 (Version 1)
Quarter: 2019Q2

REPORT INFORMATION
  Report Type: Report from Study
  Country: ES (occurrence: ES)
  Receive Date: 20190606
  Receipt Date: 20190606
  Transmission Date: 20190711
  Serious: Yes (Other)
  Sender: FDA-Public Use
  Company Number: ES-BRISTOL-MYERS SQUIBB COMPANY-BMS-2019-053752

PATIENT
  Age: 75 Year
  Sex: Male
  Weight: 76 kg

DRUGS (11)
  1. 5-FLUORACILO [Concomitant]
     Active Substance: FLUOROURACIL
     Indication: NEOPLASM MALIGNANT
     Dosage: 4421 MILLIGRAM
     Route: 042
     Dates: start: 20180702
  2. DEXAMETHASONE. [Concomitant]
     Active Substance: DEXAMETHASONE
     Indication: PRODUCT USED FOR UNKNOWN INDICATION
     Dosage: 8 MILLIGRAM, PRN
     Route: 048
     Dates: start: 20180702
  3. ONDASETRON [ONDANSETRON] [Concomitant]
     Indication: PRODUCT USED FOR UNKNOWN INDICATION
     Dosage: 4 MILLIGRAM, PRN
     Route: 048
     Dates: start: 20180702
  4. OXALIPLATINE [Concomitant]
     Active Substance: OXALIPLATIN
     Indication: NEOPLASM MALIGNANT
     Dosage: 157 MILLIGRAM
     Route: 042
     Dates: start: 20180702
  5. ONDASETRON [ONDANSETRON] [Concomitant]
     Indication: PROPHYLAXIS
     Dosage: 8 MILLIGRAM
     Route: 042
     Dates: start: 20180702
  6. NISTATIN [Concomitant]
     Active Substance: NYSTATIN
     Indication: PRODUCT USED FOR UNKNOWN INDICATION
     Dosage: 250 MILLIGRAM, TID
     Route: 048
     Dates: start: 20180730
  7. PARACETAMOL [Concomitant]
     Active Substance: ACETAMINOPHEN
     Indication: PRODUCT USED FOR UNKNOWN INDICATION
     Dosage: 1 GRAM, TID
     Route: 048
     Dates: start: 20180731
  8. 5-FLUORACILO [Concomitant]
     Active Substance: FLUOROURACIL
     Indication: NEOPLASM MALIGNANT
     Dosage: 737 MILLIGRAM
     Route: 042
     Dates: start: 20180702
  9. LEUCOVORINE [Concomitant]
     Active Substance: LEUCOVORIN
     Indication: NEOPLASM MALIGNANT
     Dosage: 737 MILLIGRAM
     Route: 042
     Dates: start: 20180702
  10. APIXABAN [Suspect]
     Active Substance: APIXABAN
     Indication: PULMONARY EMBOLISM
     Dosage: 5 MILLIGRAM, DAILY
     Route: 048
     Dates: start: 20180528, end: 20181203
  11. DEXAMETHASONE. [Concomitant]
     Active Substance: DEXAMETHASONE
     Indication: PROPHYLAXIS
     Dosage: 8 MILLIGRAM
     Route: 042
     Dates: start: 20180702

REACTIONS (1)
  - Coagulopathy [Not Recovered/Not Resolved]

NARRATIVE: CASE EVENT DATE: 20180622
